FAERS Safety Report 16052939 (Version 2)
Quarter: 2019Q1

REPORT INFORMATION
  Report Type: Report from Study
  Country: US (occurrence: US)
  Receive Date: 20190308
  Receipt Date: 20190320
  Transmission Date: 20190418
  Serious: Yes (Other)
  Sender: FDA-Public Use
  Company Number: US-OTSUKA-2019_006701

PATIENT
  Sex: Female

DRUGS (1)
  1. TOLVAPTAN [Suspect]
     Active Substance: TOLVAPTAN
     Indication: PRODUCT USED FOR UNKNOWN INDICATION
     Dosage: UNK
     Route: 065
     Dates: start: 201901, end: 20190214

REACTIONS (6)
  - Nausea [Unknown]
  - Thirst [Unknown]
  - Vomiting [Unknown]
  - Decreased appetite [Unknown]
  - Malaise [Unknown]
  - Liver injury [Unknown]
